FAERS Safety Report 5990185-8 (Version None)
Quarter: 2008Q4

REPORT INFORMATION
  Report Type: 
  Country: None (occurrence: None)
  Receive Date: 20081209
  Receipt Date: 20081126
  Transmission Date: 20090506
  Serious: Yes (Hospitalization)
  Sender: FDA-Public Use
  Company Number: URSO-2008-170

PATIENT
  Age: 79 Year
  Sex: Female

DRUGS (2)
  1. URSO 250 [Suspect]
     Indication: LIVER DISORDER
     Dosage: 600 MG/DAY
     Route: 048
     Dates: start: 20081009, end: 20081016
  2. NEO-MINOPHAGEN C (GLYCYRRHIZIN_GLYCINE_CYSTEINE COMBINED DRUG) [Suspect]
     Indication: LIVER DISORDER
     Dosage: 60ML
     Route: 042
     Dates: start: 20081009, end: 20081016

REACTIONS (1)
  - TOXIC SKIN ERUPTION [None]
